FAERS Safety Report 6260915-9 (Version None)
Quarter: 2009Q3

REPORT INFORMATION
  Report Type: 
  Country: None (occurrence: None)
  Receive Date: 20090709
  Receipt Date: 20071009
  Transmission Date: 20100115
  Serious: Yes (Other)
  Sender: FDA-Public Use
  Company Number: US-ASTRAZENECA-2007UW16439

PATIENT
  Age: 19535 Day
  Sex: Female
  Weight: 93.9 kg

DRUGS (27)
  1. SEROQUEL [Suspect]
     Indication: SCHIZOPHRENIA
     Route: 048
  2. SEROQUEL [Suspect]
     Dosage: 200-300 MG
     Route: 048
     Dates: start: 20000202
  3. CLOZARIL [Concomitant]
  4. EVISTA [Concomitant]
  5. AVANDIA [Concomitant]
  6. CLOZAPINE [Concomitant]
  7. GLYBURIDE [Concomitant]
  8. GLUCOPHAGE [Concomitant]
  9. LISINOPRIL [Concomitant]
  10. CEPHALEXIN [Concomitant]
  11. RANITIDINE [Concomitant]
  12. FE-TINIC [Concomitant]
  13. TRAMADOL HCL [Concomitant]
  14. RHINOFLEX [Concomitant]
  15. BIAXIN [Concomitant]
  16. GLUCOTROL [Concomitant]
  17. COZAAR [Concomitant]
  18. PRILOSEC [Concomitant]
  19. ELESTAT [Concomitant]
  20. GABAPENTIN [Concomitant]
  21. PROMETHAZINE [Concomitant]
  22. LORAZEPAM [Concomitant]
  23. CALTRATE [Concomitant]
  24. REGLAN [Concomitant]
  25. BENTYL [Concomitant]
  26. ROCEPHIN [Concomitant]
  27. ACTIVELLA [Concomitant]

REACTIONS (2)
  - DIABETES MELLITUS [None]
  - DIABETIC NEUROPATHY [None]
